FAERS Safety Report 13073637 (Version 2)
Quarter: 2017Q2

REPORT INFORMATION
  Report Type: Spontaneous
  Country: US (occurrence: US)
  Receive Date: 20161229
  Receipt Date: 20170414
  Transmission Date: 20170830
  Serious: No
  Sender: FDA-Public Use
  Company Number: US-BRISTOL-MYERS SQUIBB COMPANY-BMS-2016-107043

PATIENT
  Sex: Male
  Weight: 95.69 kg

DRUGS (3)
  1. MULTAQ [Suspect]
     Active Substance: DRONEDARONE
     Indication: HEADACHE
     Dosage: UNK
     Route: 065
     Dates: start: 20161220
  2. BABY ASPIRIN [Concomitant]
     Active Substance: ASPIRIN
     Indication: PRODUCT USED FOR UNKNOWN INDICATION
     Dosage: UNK
     Route: 065
  3. ELIQUIS [Suspect]
     Active Substance: APIXABAN
     Indication: CEREBROVASCULAR ACCIDENT PROPHYLAXIS
     Dosage: 5 MG, BID
     Route: 048
     Dates: start: 20161101

REACTIONS (3)
  - Asthenia [Unknown]
  - Headache [Not Recovered/Not Resolved]
  - Dizziness [Unknown]
